FAERS Safety Report 17121318 (Version 1)
Quarter: 2019Q4

REPORT INFORMATION
  Report Type: Spontaneous
  Country: US (occurrence: US)
  Receive Date: 20191206
  Receipt Date: 20191206
  Transmission Date: 20200122
  Serious: No
  Sender: FDA-Public Use
  Company Number: US-UCBSA-2017024901

PATIENT
  Sex: Female
  Weight: 66.22 kg

DRUGS (4)
  1. NEUPRO [Suspect]
     Active Substance: ROTIGOTINE
     Indication: PARKINSON^S DISEASE
     Dosage: 2 MG, ONCE DAILY (QD)
     Dates: start: 2017, end: 2017
  2. NEUPRO [Suspect]
     Active Substance: ROTIGOTINE
     Dosage: 4 MG, ONCE DAILY (QD)
     Dates: start: 2017, end: 2017
  3. CARBIDOPA/LEVODOPA [Concomitant]
     Active Substance: CARBIDOPA\LEVODOPA
     Indication: PRODUCT USED FOR UNKNOWN INDICATION
     Dosage: 10/100 QD
     Dates: start: 2017
  4. NEUPRO [Suspect]
     Active Substance: ROTIGOTINE
     Dosage: 4MG + 2MG
     Dates: start: 201706, end: 20170624

REACTIONS (6)
  - Application site rash [Recovering/Resolving]
  - Joint swelling [Recovering/Resolving]
  - Emotional disorder [Not Recovered/Not Resolved]
  - Peripheral swelling [Recovered/Resolved]
  - Drug ineffective [Unknown]
  - Application site pruritus [Recovering/Resolving]

NARRATIVE: CASE EVENT DATE: 2017
